FAERS Safety Report 16678360 (Version 1)
Quarter: 2019Q3

REPORT INFORMATION
  Report Type: Spontaneous
  Country: US (occurrence: US)
  Receive Date: 20190621
  Receipt Date: 20190621
  Transmission Date: 20191004
  Serious: No
  Sender: FDA-Public Use
  Company Number: None

PATIENT
  Age: 71 Year
  Sex: Female
  Weight: 52.16 kg

DRUGS (1)
  1. ZOLEDRONIC ACID 5 MG/100 ML [Suspect]
     Active Substance: ZOLEDRONIC ACID
     Indication: SENILE OSTEOPOROSIS
     Dosage: INFUSE 5MG INTRAVENOUSLY OVER NO LESS THAN 15 MINS EVERY YEAR AS DIRECTED
     Route: 042
     Dates: start: 201806

REACTIONS (1)
  - Road traffic accident [None]
